FAERS Safety Report 8252679-4 (Version None)
Quarter: 2012Q2

REPORT INFORMATION
  Report Type: 
  Country: None (occurrence: None)
  Receive Date: 20120402
  Receipt Date: 20110816
  Transmission Date: 20120825
  Serious: No
  Sender: FDA-Public Use
  Company Number: US-ABBOTT-11P-163-0846875-00

PATIENT
  Sex: Male
  Weight: 90.8 kg

DRUGS (2)
  1. ZOCOR [Concomitant]
     Indication: BLOOD CHOLESTEROL INCREASED
  2. ANDROGEL [Suspect]
     Indication: HYPOGONADISM
     Dosage: 2 PUMP PRESSES ONCE DAILY
     Dates: start: 20101201

REACTIONS (1)
  - THERAPEUTIC RESPONSE UNEXPECTED [None]
